FAERS Safety Report 8219055-1 (Version None)
Quarter: 2012Q1

REPORT INFORMATION
  Report Type: 
  Country: None (occurrence: None)
  Receive Date: 20120307
  Receipt Date: 20110712
  Transmission Date: 20120608
  Serious: Yes (Other)
  Sender: FDA-Public Use
  Company Number: 163-21660-11070650

PATIENT
  Sex: Female

DRUGS (2)
  1. ABRAXANE [Suspect]
     Indication: BREAST CANCER METASTATIC
     Dosage: 130 MG/M2, QWK, IV
     Route: 042
     Dates: start: 20110105, end: 20110105
  2. GEMCITABINE [Concomitant]

REACTIONS (2)
  - DYSPNOEA [None]
  - HYPERSENSITIVITY [None]
